FAERS Safety Report 5954040-1 (Version None)
Quarter: 2008Q4

REPORT INFORMATION
  Report Type: 
  Country: None (occurrence: None)
  Receive Date: 20081114
  Receipt Date: 20081104
  Transmission Date: 20090506
  Serious: Yes (Other)
  Sender: FDA-Public Use
  Company Number: US-PFIZER INC-2008094559

PATIENT
  Sex: Female

DRUGS (2)
  1. PROVERA [Suspect]
     Route: 048
  2. ESTRADIOL [Suspect]

REACTIONS (3)
  - CYST [None]
  - MENORRHAGIA [None]
  - UTERINE ENLARGEMENT [None]
